FAERS Safety Report 7270719-6 (Version None)
Quarter: 2011Q1

REPORT INFORMATION
  Report Type: 
  Country: None (occurrence: None)
  Receive Date: 20110202
  Receipt Date: 20110128
  Transmission Date: 20110831
  Serious: Yes (Death, Hospitalization)
  Sender: FDA-Public Use
  Company Number: B0697048A

PATIENT
  Age: 63 Year
  Sex: Male

DRUGS (2)
  1. AVANDIA [Suspect]
     Dosage: 8MG PER DAY
     Route: 048
     Dates: start: 20011001, end: 20081217
  2. AVANDARYL [Suspect]
     Route: 048
     Dates: start: 20060101, end: 20081217

REACTIONS (2)
  - DEATH [None]
  - MYOCARDIAL INFARCTION [None]
